FAERS Safety Report 8912439 (Version 1)
Quarter: 2012Q4

REPORT INFORMATION
  Report Type: 
  Country: CH (occurrence: CH)
  Receive Date: 20121116
  Receipt Date: 20121116
  Transmission Date: 20130627
  Serious: Yes (Hospitalization)
  Sender: FDA-Public Use
  Company Number: CH-ABBOTT-12P-151-1005703-00

PATIENT
  Age: 24 Year
  Sex: Male

DRUGS (6)
  1. KLACID [Suspect]
     Indication: PYREXIA
     Route: 048
     Dates: start: 20120626, end: 20120628
  2. KLACID [Suspect]
     Indication: OROPHARYNGEAL PAIN
  3. KLACID [Suspect]
     Indication: PRODUCTIVE COUGH
  4. DOXYCYCLINE HYDROCHLORIDE [Suspect]
     Indication: PYREXIA
     Dates: start: 20120628, end: 20120702
  5. DOXYCYCLINE HYDROCHLORIDE [Suspect]
     Indication: OROPHARYNGEAL PAIN
  6. DOXYCYCLINE HYDROCHLORIDE [Suspect]
     Indication: PRODUCTIVE COUGH

REACTIONS (6)
  - Liver injury [Recovered/Resolved]
  - Ocular icterus [Recovered/Resolved]
  - Rash maculo-papular [Recovered/Resolved]
  - Pruritus [Unknown]
  - General physical health deterioration [Recovered/Resolved]
  - Epstein-Barr virus infection [None]
